FAERS Safety Report 9220592 (Version 2)
Quarter: 2013Q3

REPORT INFORMATION
  Report Type: Report from Study
  Country: MX (occurrence: MX)
  Receive Date: 20130409
  Receipt Date: 20130822
  Transmission Date: 20140515
  Serious: Yes (Other)
  Sender: FDA-Public Use
  Company Number: PHHY2013MX034416

PATIENT
  Age: 84 Year
  Sex: Female

DRUGS (3)
  1. EXFORGE [Suspect]
     Indication: HYPERTENSION
     Dosage: 1 DF(160/5 MG), DAILY
     Route: 048
     Dates: start: 200808, end: 200908
  2. EXFORGE [Suspect]
     Dosage: 1.5 DF (160/5MG), DAILY
     Route: 048
     Dates: start: 200908
  3. CLONAZEPAM [Concomitant]
     Indication: NERVOUSNESS
     Dosage: 1 UKN, DAILY

REACTIONS (10)
  - Chronic obstructive pulmonary disease [Not Recovered/Not Resolved]
  - Dyspnoea [Not Recovered/Not Resolved]
  - Cataract [Recovered/Resolved]
  - Ocular neoplasm [Recovered/Resolved]
  - Eye disorder [Recovered/Resolved]
  - Amnesia [Not Recovered/Not Resolved]
  - Memory impairment [Not Recovered/Not Resolved]
  - Stress [Recovered/Resolved]
  - Rash [Recovered/Resolved]
  - Wrong technique in drug usage process [Unknown]
